FAERS Safety Report 18534461 (Version 1)
Quarter: 2020Q4

REPORT INFORMATION
  Report Type: Spontaneous
  Country: US (occurrence: US)
  Receive Date: 20201123
  Receipt Date: 20201123
  Transmission Date: 20210114
  Serious: Yes (Hospitalization, Other)
  Sender: FDA-Public Use
  Company Number: US-SA-2020SA315186

PATIENT

DRUGS (6)
  1. DUPIXENT [Suspect]
     Active Substance: DUPILUMAB
     Indication: MUSCLE SPASMS
  2. DUPIXENT [Suspect]
     Active Substance: DUPILUMAB
     Indication: MIGRAINE
  3. DUPIXENT [Suspect]
     Active Substance: DUPILUMAB
     Indication: OCCIPITAL NEURALGIA
  4. DUPIXENT [Suspect]
     Active Substance: DUPILUMAB
     Indication: NECK PAIN
  5. BOTOX [Concomitant]
     Active Substance: ONABOTULINUMTOXINA
     Dosage: UNK
     Route: 065
  6. DUPIXENT [Suspect]
     Active Substance: DUPILUMAB
     Indication: ASTHMA
     Dosage: 300 MG, QOW
     Route: 058
     Dates: start: 201908

REACTIONS (2)
  - Gastric perforation [Unknown]
  - Product use in unapproved indication [Unknown]

NARRATIVE: CASE EVENT DATE: 201908
